FAERS Safety Report 9681114 (Version 1)
Quarter: 2013Q4

REPORT INFORMATION
  Report Type: Report from Study
  Country: US (occurrence: US)
  Receive Date: 20131111
  Receipt Date: 20131111
  Transmission Date: 20140711
  Serious: Yes (Hospitalization)
  Sender: FDA-Public Use
  Company Number: US-PURDUE-USA-2013-0108310

PATIENT
  Age: 42 Year
  Sex: Female

DRUGS (2)
  1. OXY CR TAB 5 MG [Suspect]
     Indication: OSTEOARTHRITIS
     Dosage: 30 MG, BID
     Route: 048
     Dates: start: 20131004
  2. OXY CR TAB 5 MG [Suspect]
     Dosage: UNK
     Route: 048
     Dates: start: 2011

REACTIONS (6)
  - Cellulitis [Unknown]
  - Tooth abscess [Unknown]
  - Swelling face [Unknown]
  - Swelling [Unknown]
  - Oedema mouth [Unknown]
  - Oral pain [Unknown]
